FAERS Safety Report 12215002 (Version 3)
Quarter: 2016Q4

REPORT INFORMATION
  Report Type: Spontaneous
  Country: BR (occurrence: BR)
  Receive Date: 20160328
  Receipt Date: 20161221
  Transmission Date: 20170207
  Serious: Yes (Other)
  Sender: FDA-Public Use
  Company Number: BR-JNJFOC-20160323439

PATIENT
  Age: 57 Year
  Sex: Male
  Weight: 89 kg

DRUGS (2)
  1. SOFOSBUVIR [Concomitant]
     Active Substance: SOFOSBUVIR
     Dosage: DOSE- 400 (UNITS UNSPECIFIED)
     Route: 065
  2. OLYSIO [Suspect]
     Active Substance: SIMEPREVIR
     Indication: CHRONIC HEPATITIS C
     Dosage: DOSE- 150 (UNITS UNSPECIFIED)
     Route: 065
     Dates: start: 20160314, end: 20160605

REACTIONS (4)
  - Face oedema [Recovered/Resolved]
  - Lip oedema [Recovered/Resolved]
  - Angioedema [Recovered/Resolved]
  - Hypersensitivity [Recovered/Resolved]
